FAERS Safety Report 8304356-9 (Version None)
Quarter: 2012Q2

REPORT INFORMATION
  Report Type: 
  Country: None (occurrence: None)
  Receive Date: 20120423
  Receipt Date: 20120416
  Transmission Date: 20120825
  Serious: Yes (Hospitalization)
  Sender: FDA-Public Use
  Company Number: PHEH2012US005784

PATIENT
  Sex: Female

DRUGS (3)
  1. TRAMADOL HCL [Concomitant]
  2. CHEMOTHERAPEUTICS [Concomitant]
  3. GILENYA [Suspect]
     Indication: RELAPSING-REMITTING MULTIPLE SCLEROSIS
     Dosage: 0.5 MG, QD
     Route: 048
     Dates: start: 20120127

REACTIONS (6)
  - DRUG INEFFECTIVE [None]
  - SQUAMOUS CELL CARCINOMA OF THE CERVIX [None]
  - DYSPNOEA [None]
  - METASTASES TO LUNG [None]
  - ASTHENIA [None]
  - FATIGUE [None]
